FAERS Safety Report 8580353-3 (Version None)
Quarter: 2012Q3

REPORT INFORMATION
  Report Type: 
  Country: None (occurrence: None)
  Receive Date: 20120808
  Receipt Date: 20120731
  Transmission Date: 20120928
  Serious: Yes (Life-Threatening, Hospitalization, Other)
  Sender: FDA-Public Use
  Company Number: JP-PFIZER INC-2009252946

PATIENT
  Age: 59 Year
  Sex: Female
  Weight: 41.8 kg

DRUGS (8)
  1. MIYARISAN BM [Concomitant]
     Dosage: UNK
     Route: 048
     Dates: start: 20090531
  2. FAMOTIDINE [Concomitant]
     Dosage: UNK
     Route: 048
     Dates: start: 20090609
  3. ACETAMINOPHEN [Concomitant]
     Dosage: UNK
     Route: 048
     Dates: start: 20090529
  4. KYTRIL [Concomitant]
     Dosage: UNK
     Route: 048
     Dates: start: 20090702
  5. SUNITINIB MALATE [Suspect]
     Dosage: 12.5 MG, 1X/DAY
     Dates: start: 20090722, end: 20090724
  6. LORAZEPAM [Concomitant]
     Dosage: UNK
     Route: 048
     Dates: start: 20090706
  7. SUNITINIB MALATE [Suspect]
     Indication: METASTASES TO LIVER
     Dosage: 50 MG, DAILY, TDD 50 MG
     Route: 048
     Dates: start: 20090519, end: 20090622
  8. SUNITINIB MALATE [Suspect]
     Dosage: 25 MG, 1X/DAY
     Dates: start: 20090623, end: 20090713

REACTIONS (5)
  - DYSPNOEA [None]
  - THROMBOCYTOPENIA [None]
  - FLUID RETENTION [None]
  - CARDIAC FAILURE [None]
  - FATIGUE [None]
